FAERS Safety Report 9023607 (Version 2)
Quarter: 2013Q1

REPORT INFORMATION
  Report Type: Report from Study
  Country: BR (occurrence: BR)
  Receive Date: 20130121
  Receipt Date: 20130304
  Transmission Date: 20140127
  Serious: Yes (Death, Hospitalization)
  Sender: FDA-Public Use
  Company Number: BR-ACTELION-A-CH2013-78159

PATIENT
  Age: 46 Year
  Sex: Female

DRUGS (1)
  1. TRACLEER [Suspect]
     Indication: PULMONARY ARTERIAL HYPERTENSION
     Dosage: 125 MG, BID
     Route: 048
     Dates: end: 20130113

REACTIONS (6)
  - Pneumonia [Fatal]
  - Septic shock [Fatal]
  - Multi-organ failure [Fatal]
  - Blood creatinine increased [Fatal]
  - Blood urea increased [Fatal]
  - Hepatic enzyme increased [Fatal]
